FAERS Safety Report 16423975 (Version 2)
Quarter: 2020Q2

REPORT INFORMATION
  Report Type: Spontaneous
  Country: ES (occurrence: ES)
  Receive Date: 20190613
  Receipt Date: 20200429
  Transmission Date: 20200713
  Serious: Yes (Hospitalization, Other)
  Sender: FDA-Public Use
  Company Number: ES-AUROBINDO-AUR-APL-2019-033300

PATIENT
  Age: 2 Year
  Sex: Female

DRUGS (2)
  1. PREDNISOLONE. [Interacting]
     Active Substance: PREDNISOLONE
     Indication: BRONCHITIS
     Dosage: UNK
     Route: 065
     Dates: start: 201702, end: 20170216
  2. IBUPROFEN. [Suspect]
     Active Substance: IBUPROFEN
     Indication: BRONCHITIS
     Dosage: UNK
     Route: 065
     Dates: start: 201702, end: 20170216

REACTIONS (3)
  - Haematemesis [Recovering/Resolving]
  - Gastritis [Recovering/Resolving]
  - Melaena [Recovered/Resolved]

NARRATIVE: CASE EVENT DATE: 20170216
